FAERS Safety Report 8954272 (Version 1)
Quarter: 2012Q4

REPORT INFORMATION
  Report Type: 
  Country: CA (occurrence: CA)
  Receive Date: 20121207
  Receipt Date: 20121207
  Transmission Date: 20130627
  Serious: Yes (Other)
  Sender: FDA-Public Use
  Company Number: CA-B.I. PHARMACEUTICALS,INC./RIDGEFIELD-2012-CN-02472CN

PATIENT
  Age: 80 Year
  Sex: Female
  Weight: 55.8 kg

DRUGS (5)
  1. PRADAX [Suspect]
     Dosage: 2 dosage forms
     Route: 048
  2. APO-PROPAFENONE [Concomitant]
  3. CALCIUM [Concomitant]
  4. RAN-PANTOPRAZOLE [Concomitant]
  5. VITAMIN D [Concomitant]

REACTIONS (1)
  - Hyponatraemia [Not Recovered/Not Resolved]
